FAERS Safety Report 12192426 (Version 2)
Quarter: 2016Q2

REPORT INFORMATION
  Report Type: Spontaneous
  Country: JP (occurrence: JP)
  Receive Date: 20160318
  Receipt Date: 20160404
  Transmission Date: 20160815
  Serious: Yes (Hospitalization)
  Sender: FDA-Public Use
  Company Number: JP-ELI_LILLY_AND_COMPANY-JP201603003441

PATIENT
  Age: 0 Day
  Sex: Female
  Weight: 1.74 kg

DRUGS (7)
  1. SENNOSIDE                          /00571901/ [Concomitant]
     Active Substance: SENNOSIDES A AND B
     Route: 064
  2. SERENAL                            /00358201/ [Concomitant]
     Route: 064
  3. RITODRINE [Concomitant]
     Active Substance: RITODRINE
     Indication: THREATENED LABOUR
     Dosage: UNK
     Route: 064
     Dates: start: 20160210
  4. MAGSENT [Concomitant]
     Active Substance: DEXTROSE\MAGNESIUM SULFATE HEPTAHYDRATE
     Route: 064
  5. MAGMITT [Concomitant]
     Active Substance: MAGNESIUM OXIDE
     Route: 064
  6. CYMBALTA [Suspect]
     Active Substance: DULOXETINE HYDROCHLORIDE
     Indication: DEPRESSION
     Dosage: 40 MG, EACH EVENING
     Route: 064
     Dates: end: 20160304
  7. PARIET [Concomitant]
     Active Substance: RABEPRAZOLE SODIUM
     Route: 064

REACTIONS (9)
  - Foetal exposure during pregnancy [Recovered/Resolved]
  - Exposure during breast feeding [Unknown]
  - Hypotonia neonatal [Recovered/Resolved]
  - Respiratory disorder neonatal [Recovered/Resolved]
  - Pallor [Recovered/Resolved]
  - Drug withdrawal syndrome neonatal [Recovered/Resolved]
  - Premature baby [Unknown]
  - Decreased activity [Recovered/Resolved]
  - Neonatal hepatomegaly [Recovered/Resolved]

NARRATIVE: CASE EVENT DATE: 20160304
